FAERS Safety Report 11381976 (Version 1)
Quarter: 2015Q3

REPORT INFORMATION
  Report Type: Spontaneous
  Country: US (occurrence: US)
  Receive Date: 20150811
  Receipt Date: 20150811
  Transmission Date: 20151125
  Serious: No
  Sender: FDA-Public Use
  Company Number: US-ELI_LILLY_AND_COMPANY-US200909004758

PATIENT
  Age: 50 Year
  Sex: Male

DRUGS (6)
  1. ASPIRIN. [Concomitant]
     Active Substance: ASPIRIN
     Dosage: 325 MG, DAILY (1/D)
     Route: 065
  2. LIPITOR [Concomitant]
     Active Substance: ATORVASTATIN CALCIUM
     Dosage: 20 MG, DAILY (1/D)
     Route: 065
  3. CIALIS [Suspect]
     Active Substance: TADALAFIL
     Dosage: UNK, UNKNOWN
     Route: 065
  4. DEPAKOTE [Concomitant]
     Active Substance: DIVALPROEX SODIUM
     Dosage: UNK, DAILY (1/D)
     Route: 065
  5. INDERAL LA [Interacting]
     Active Substance: PROPRANOLOL HYDROCHLORIDE
     Indication: MITRAL VALVE PROLAPSE
     Dosage: 60 MG, DAILY (1/D)
     Route: 065
  6. XANAX [Concomitant]
     Active Substance: ALPRAZOLAM
     Dosage: UNK, DAILY (1/D)
     Route: 065

REACTIONS (4)
  - Heart rate increased [Recovered/Resolved]
  - Drug interaction [Not Recovered/Not Resolved]
  - Hypotension [Not Recovered/Not Resolved]
  - Intentional product misuse [Unknown]

NARRATIVE: CASE EVENT DATE: 20090919
